FAERS Safety Report 21308909 (Version 1)
Quarter: 2022Q3

REPORT INFORMATION
  Report Type: Spontaneous
  Country: CN (occurrence: CN)
  Receive Date: 20220908
  Receipt Date: 20220908
  Transmission Date: 20221026
  Serious: Yes (Other)
  Sender: FDA-Public Use
  Company Number: None

PATIENT
  Age: 73 Year
  Sex: Male

DRUGS (1)
  1. METRONIDAZOLE [Suspect]
     Active Substance: METRONIDAZOLE
     Indication: Salivary gland cancer
     Dosage: 0.5 GRAMS (G), ONCE DAILY, DOSAGE FORM: INJECTION
     Route: 041
     Dates: start: 20220714, end: 20220714

REACTIONS (3)
  - Upper gastrointestinal haemorrhage [Unknown]
  - Haematemesis [Recovering/Resolving]
  - Nausea [Recovering/Resolving]

NARRATIVE: CASE EVENT DATE: 20220714
